FAERS Safety Report 17431788 (Version 1)
Quarter: 2020Q1

REPORT INFORMATION
  Report Type: Spontaneous
  Country: DE (occurrence: DE)
  Receive Date: 20200218
  Receipt Date: 20200218
  Transmission Date: 20200409
  Serious: Yes (Life-Threatening, Other)
  Sender: FDA-Public Use
  Company Number: DE-PFIZER INC-2020068866

PATIENT
  Age: 18 Year
  Sex: Female
  Weight: 81 kg

DRUGS (1)
  1. CYTOTEC [Suspect]
     Active Substance: MISOPROSTOL
     Dosage: 3 DF, DAILY
     Dates: start: 20190911, end: 20190911

REACTIONS (3)
  - Uterine contractions abnormal [Recovered/Resolved]
  - Haemorrhage [Recovered/Resolved]
  - Uterine atony [Recovered/Resolved]

NARRATIVE: CASE EVENT DATE: 20190911
